FAERS Safety Report 13858286 (Version 1)
Quarter: 2017Q3

REPORT INFORMATION
  Report Type: Spontaneous
  Country: US (occurrence: US)
  Receive Date: 20170811
  Receipt Date: 20170811
  Transmission Date: 20171127
  Serious: No
  Sender: FDA-Public Use
  Company Number: US-TEVA-795142ACC

PATIENT
  Sex: Female

DRUGS (1)
  1. DULOXETINE. [Suspect]
     Active Substance: DULOXETINE
     Indication: FIBROMYALGIA
     Dates: start: 20170727

REACTIONS (1)
  - Migraine [Recovering/Resolving]

NARRATIVE: CASE EVENT DATE: 20170727
